FAERS Safety Report 6547057-X (Version None)
Quarter: 2010Q1

REPORT INFORMATION
  Report Type: 
  Country: None (occurrence: None)
  Receive Date: 20100122
  Receipt Date: 20100112
  Transmission Date: 20100710
  Serious: Yes (Hospitalization)
  Sender: FDA-Public Use
  Company Number: GB-ABBOTT-09P-167-0610542-00

PATIENT
  Sex: Female
  Weight: 69 kg

DRUGS (17)
  1. HUMIRA [Suspect]
     Indication: RHEUMATOID ARTHRITIS
     Route: 058
     Dates: start: 20041129, end: 20090501
  2. HUMIRA [Suspect]
     Route: 058
     Dates: start: 20090801
  3. ACUPAN [Concomitant]
     Indication: DRUG USE FOR UNKNOWN INDICATION
     Dates: start: 20041202
  4. AMITRIPTYLINE HCL [Concomitant]
     Indication: DRUG USE FOR UNKNOWN INDICATION
     Route: 048
     Dates: start: 20041202
  5. BENDROFLUAZIDE [Concomitant]
     Indication: DRUG USE FOR UNKNOWN INDICATION
     Route: 048
     Dates: start: 20041202
  6. CO-CODAMOL [Concomitant]
     Indication: DRUG USE FOR UNKNOWN INDICATION
     Dosage: BASELINE MEDICATION AT 02-DEC-2004
     Dates: start: 20041202
  7. LACRILUBE [Concomitant]
     Indication: DRUG USE FOR UNKNOWN INDICATION
     Dosage: BASELINE MEDICATION AT 02-DEC-2004
     Dates: start: 20041202
  8. LOSEC [Concomitant]
     Indication: DRUG USE FOR UNKNOWN INDICATION
     Dosage: BASELINE MEDICATION AT 02-DEC-2004
     Dates: start: 20041202
  9. PIROXICAM [Concomitant]
     Indication: DRUG USE FOR UNKNOWN INDICATION
     Dosage: BASELINE MEDICATION AT 02-DEC-2004
     Dates: start: 20041202
  10. ADCAL-D3 [Concomitant]
     Indication: DRUG USE FOR UNKNOWN INDICATION
     Route: 048
  11. SENNA [Concomitant]
     Indication: DRUG USE FOR UNKNOWN INDICATION
     Route: 048
  12. PREDNISOLONE [Concomitant]
     Indication: DRUG USE FOR UNKNOWN INDICATION
     Route: 048
  13. SIMVASTATIN [Concomitant]
     Indication: DRUG USE FOR UNKNOWN INDICATION
     Route: 048
  14. CALCIUM ERGOCALCIFEROL [Concomitant]
     Indication: DRUG USE FOR UNKNOWN INDICATION
     Route: 048
  15. OMEPRAZOLE [Concomitant]
     Indication: DRUG USE FOR UNKNOWN INDICATION
  16. RISEDRONATE SODIUM [Concomitant]
     Indication: DRUG USE FOR UNKNOWN INDICATION
  17. ENALAPRIL MALEATE [Concomitant]
     Indication: DRUG USE FOR UNKNOWN INDICATION
     Route: 048

REACTIONS (3)
  - ABDOMINAL PAIN UPPER [None]
  - CHOLELITHIASIS [None]
  - LIVER FUNCTION TEST ABNORMAL [None]
